FAERS Safety Report 7959657-0 (Version None)
Quarter: 2011Q4

REPORT INFORMATION
  Report Type: 
  Country: None (occurrence: None)
  Receive Date: 20111206
  Receipt Date: 20111202
  Transmission Date: 20120403
  Serious: No
  Sender: FDA-Public Use
  Company Number: US-PFIZER INC-2011182650

PATIENT
  Sex: Female
  Weight: 104 kg

DRUGS (4)
  1. SUTENT [Suspect]
     Dosage: 37.5 MG, 1X/DAY
     Route: 048
  2. CELEXA [Concomitant]
     Dosage: 10 MG, UNK
  3. OMEPRAZOLE [Concomitant]
     Dosage: 10 MG, UNK
  4. SUTENT [Suspect]
     Dosage: 25 MG, 1X/DAY
     Route: 048
     Dates: start: 20110718

REACTIONS (2)
  - SOMNOLENCE [None]
  - FATIGUE [None]
